FAERS Safety Report 6436202-2 (Version None)
Quarter: 2009Q4

REPORT INFORMATION
  Report Type: 
  Country: None (occurrence: None)
  Receive Date: 20091111
  Receipt Date: 20091104
  Transmission Date: 20100525
  Serious: Yes (Other)
  Sender: FDA-Public Use
  Company Number: JP-MERCK-0910USA03969

PATIENT
  Age: 49 Year
  Sex: Male
  Weight: 66 kg

DRUGS (2)
  1. PROPECIA [Suspect]
     Indication: ANDROGENETIC ALOPECIA
     Route: 048
     Dates: start: 20081214, end: 20091012
  2. PROPECIA [Suspect]
     Route: 048
     Dates: start: 20081209, end: 20081213

REACTIONS (1)
  - RHABDOMYOLYSIS [None]
